FAERS Safety Report 13865776 (Version 3)
Quarter: 2018Q3

REPORT INFORMATION
  Report Type: Spontaneous
  Country: US (occurrence: US)
  Receive Date: 20170814
  Receipt Date: 20180725
  Transmission Date: 20181010
  Serious: No
  Sender: FDA-Public Use
  Company Number: US-CELGENEUS-USA-20170802407

PATIENT
  Age: 36 Year
  Sex: Female

DRUGS (6)
  1. HYDROCORTISONE. [Concomitant]
     Active Substance: HYDROCORTISONE
     Indication: PRODUCT USED FOR UNKNOWN INDICATION
  2. OTEZLA [Suspect]
     Active Substance: APREMILAST
     Indication: PSORIASIS
     Dosage: 60 MILLIGRAM
     Route: 048
     Dates: start: 20170805
  3. OTEZLA [Suspect]
     Active Substance: APREMILAST
     Indication: PSORIATIC ARTHROPATHY
     Dosage: STARTER PACK
     Route: 048
     Dates: start: 2017
  4. KETOCONAZOLE. [Concomitant]
     Active Substance: KETOCONAZOLE
     Indication: PRODUCT USED FOR UNKNOWN INDICATION
  5. HYDROCORTISONE. [Concomitant]
     Active Substance: HYDROCORTISONE
     Indication: PRODUCT USED FOR UNKNOWN INDICATION
     Dosage: 2 REFILLS
     Route: 061
  6. KETOCONAZOLE. [Concomitant]
     Active Substance: KETOCONAZOLE
     Indication: PSORIASIS
     Dosage: 2 REFILLS
     Route: 061

REACTIONS (3)
  - Psoriasis [Unknown]
  - Diarrhoea [Unknown]
  - Weight decreased [Unknown]

NARRATIVE: CASE EVENT DATE: 20170806
